FAERS Safety Report 24257134 (Version 1)
Quarter: 2024Q3

REPORT INFORMATION
  Report Type: Spontaneous
  Country: RU (occurrence: RU)
  Receive Date: 20240828
  Receipt Date: 20240828
  Transmission Date: 20241017
  Serious: Yes (Hospitalization)
  Sender: RANBAXY
  Company Number: RU-SUN PHARMACEUTICAL INDUSTRIES LTD-2024R1-463412

PATIENT
  Age: 25 Year
  Sex: Female

DRUGS (1)
  1. CIPROFLOXACIN\TINIDAZOLE [Suspect]
     Active Substance: CIPROFLOXACIN\TINIDAZOLE
     Indication: Tooth extraction
     Dosage: UNK UNK, BID AFTER MEAL
     Route: 065

REACTIONS (1)
  - Cellulitis [Unknown]
